FAERS Safety Report 6290920-8 (Version None)
Quarter: 2009Q3

REPORT INFORMATION
  Report Type: 
  Country: None (occurrence: None)
  Receive Date: 20090728
  Receipt Date: 20090728
  Transmission Date: 20100115
  Serious: Yes (Other)
  Sender: FDA-Public Use
  Company Number: None

PATIENT
  Age: 32 Year
  Sex: Female
  Weight: 64.5 kg

DRUGS (2)
  1. ZICAM COLD REMEDY SWABS [Suspect]
     Indication: MALAISE
     Dosage: SWAB 3X DAY, 3 PERIODS OF 1 WEEK
     Dates: start: 20090101
  2. ZICAM COLD REMEDY SWABS [Suspect]
     Indication: NASAL DISORDER
     Dosage: SWAB 3X DAY, 3 PERIODS OF 1 WEEK
     Dates: start: 20090101

REACTIONS (1)
  - ANOSMIA [None]
